FAERS Safety Report 10957071 (Version 1)
Quarter: 2015Q1

REPORT INFORMATION
  Report Type: Spontaneous
  Country: US (occurrence: None)
  Receive Date: 20150325
  Receipt Date: 20150325
  Transmission Date: 20150721
  Serious: Yes (Hospitalization)
  Sender: FDA-Public Use
  Company Number: None

PATIENT
  Age: 19 Year
  Sex: Female
  Weight: 81.65 kg

DRUGS (3)
  1. RISPERIDONE 6MG [Suspect]
     Active Substance: RISPERIDONE
     Indication: SCHIZOPHRENIA
  2. TRUEHOPE [Concomitant]
  3. EMPOWERPLUS [Concomitant]

REACTIONS (3)
  - Feeling drunk [None]
  - Loss of consciousness [None]
  - Coordination abnormal [None]

NARRATIVE: CASE EVENT DATE: 20100208
